FAERS Safety Report 6055870-0 (Version None)
Quarter: 2009Q1

REPORT INFORMATION
  Report Type: 
  Country: None (occurrence: None)
  Receive Date: 20090126
  Receipt Date: 20090108
  Transmission Date: 20090719
  Serious: Yes (Death)
  Sender: FDA-Public Use
  Company Number: 1000003575

PATIENT
  Age: 61 Year
  Sex: Female

DRUGS (9)
  1. ESCITALOPRAM [Suspect]
  2. LEVOTHYROXINE SODIUM [Suspect]
  3. ACETAMINOPHEN [Suspect]
  4. CODEINE [Suspect]
  5. OXYCODONE HCL [Suspect]
  6. THIAZIDE [Suspect]
  7. DIPHENHYDRAMINE HCL [Suspect]
  8. ESTRADIOL [Suspect]
  9. PROGESTERONE [Suspect]

REACTIONS (2)
  - COMPLETED SUICIDE [None]
  - DRUG TOXICITY [None]
